FAERS Safety Report 9170062 (Version 2)
Quarter: 2013Q3

REPORT INFORMATION
  Report Type: Spontaneous
  Country: US (occurrence: None)
  Receive Date: 20130308
  Receipt Date: 20130730
  Transmission Date: 20140515
  Serious: Yes (Other)
  Sender: FDA-Public Use
  Company Number: 2013AP003342

PATIENT
  Sex: Female

DRUGS (2)
  1. ALENDRONATE SODIUM TABLETS [Suspect]
     Indication: OSTEOPOROSIS
  2. ALENDRONATE SODIUM [Suspect]
     Indication: OSTEOPOROSIS

REACTIONS (8)
  - Stress fracture [None]
  - Femur fracture [None]
  - Pain [None]
  - Osteogenesis imperfecta [None]
  - Low turnover osteopathy [None]
  - Multiple injuries [None]
  - Emotional distress [None]
  - Quality of life decreased [None]
